FAERS Safety Report 17475297 (Version 4)
Quarter: 2020Q4

REPORT INFORMATION
  Report Type: Spontaneous
  Country: US (occurrence: US)
  Receive Date: 20200228
  Receipt Date: 20201130
  Transmission Date: 20210113
  Serious: No
  Sender: FDA-Public Use
  Company Number: US-PFIZER INC-2020084829

PATIENT
  Age: 45 Year
  Sex: Female

DRUGS (1)
  1. XELJANZ XR [Suspect]
     Active Substance: TOFACITINIB CITRATE
     Indication: RHEUMATOID ARTHRITIS
     Dosage: 11 MG, 1X/DAY
     Route: 048
     Dates: start: 20200128

REACTIONS (13)
  - Weight decreased [Unknown]
  - Headache [Recovering/Resolving]
  - Somnolence [Unknown]
  - Flank pain [Unknown]
  - Condition aggravated [Unknown]
  - Adnexa uteri pain [Unknown]
  - Peripheral swelling [Not Recovered/Not Resolved]
  - Taste disorder [Unknown]
  - Product dose omission in error [Unknown]
  - Sinusitis [Unknown]
  - Abdominal pain lower [Unknown]
  - Sinus congestion [Unknown]
  - Pain in extremity [Unknown]

NARRATIVE: CASE EVENT DATE: 2020
